FAERS Safety Report 14093991 (Version 1)
Quarter: 2017Q4

REPORT INFORMATION
  Report Type: Spontaneous
  Country: US (occurrence: US)
  Receive Date: 20171016
  Receipt Date: 20171016
  Transmission Date: 20180321
  Serious: No
  Sender: FDA-Public Use
  Company Number: US-AMGEN-USASP2017024237

PATIENT
  Age: 71 Year
  Sex: Female

DRUGS (6)
  1. PRAVASTATIN. [Concomitant]
     Active Substance: PRAVASTATIN
  2. PROLIA [Suspect]
     Active Substance: DENOSUMAB
     Indication: OSTEOPOROSIS
     Dosage: 60 MG, Q6MO
     Route: 058
     Dates: start: 201501
  3. CILOSTAZOL. [Concomitant]
     Active Substance: CILOSTAZOL
  4. CAL C [Concomitant]
  5. LOSARTAN. [Concomitant]
     Active Substance: LOSARTAN
  6. ASA [Concomitant]
     Active Substance: ASPIRIN

REACTIONS (2)
  - Joint stiffness [Unknown]
  - Bone pain [Unknown]
